FAERS Safety Report 5195471-X (Version None)
Quarter: 2007Q1

REPORT INFORMATION
  Report Type: 
  Country: None (occurrence: None)
  Receive Date: 20070101
  Receipt Date: 20061218
  Transmission Date: 20070707
  Serious: Yes (Death, Life-Threatening, Hospitalization, Other)
  Sender: FDA-Public Use
  Company Number: IN-NOVOPROD-258622

PATIENT
  Sex: Male
  Weight: 60 kg

DRUGS (7)
  1. NOVOSEVEN [Suspect]
     Indication: POST PROCEDURAL HAEMORRHAGE
     Dosage: 1 DOSE
     Route: 042
     Dates: start: 20061115, end: 20061115
  2. MAGNAMYCIN [Concomitant]
     Dosage: 2 G, QD
     Route: 042
     Dates: start: 20061115
  3. OFLOXACIN [Concomitant]
     Dosage: 200 MG, QD
     Route: 042
     Dates: start: 20061115
  4. PANTOPRAZOLE SODIUM [Concomitant]
     Dosage: 40 MG, QD
     Route: 042
     Dates: start: 20061115
  5. ADRENALINE                         /00003901/ [Concomitant]
     Dosage: 0-16 ER/KG/MIN
     Route: 042
     Dates: start: 20061115
  6. NORADRENALINE [Concomitant]
     Dosage: 0-1 ER/KG/MIN
     Route: 042
     Dates: start: 20061116
  7. DOPAMINE HCL [Concomitant]
     Dosage: ER/KG/MIN
     Route: 042
     Dates: start: 20061116

REACTIONS (9)
  - BRADYCARDIA [None]
  - EMBOLISM [None]
  - HYPOTENSION [None]
  - ILEUS PARALYTIC [None]
  - INTESTINAL ISCHAEMIA [None]
  - MULTI-ORGAN FAILURE [None]
  - OXYGEN SATURATION DECREASED [None]
  - RENAL FAILURE ACUTE [None]
  - RENAL TUBULAR NECROSIS [None]
